FAERS Safety Report 8069317-6 (Version None)
Quarter: 2012Q1

REPORT INFORMATION
  Report Type: 
  Country: None (occurrence: None)
  Receive Date: 20120125
  Receipt Date: 20120116
  Transmission Date: 20120608
  Serious: Yes (Hospitalization, Other)
  Sender: FDA-Public Use
  Company Number: IT-JNJFOC-20110710982

PATIENT
  Sex: Male

DRUGS (6)
  1. RISPERDAL [Suspect]
     Indication: PSYCHOTIC DISORDER
     Route: 048
  2. RISPERDAL [Suspect]
     Route: 048
     Dates: start: 20110726, end: 20110726
  3. ALPRAZOLAM [Concomitant]
     Route: 048
  4. VENLAFAXINE [Concomitant]
     Indication: MAJOR DEPRESSION
     Route: 048
  5. VENLAFAXINE [Concomitant]
     Route: 048
     Dates: start: 20110726
  6. ALPRAZOLAM [Concomitant]
     Indication: PANIC ATTACK
     Route: 048
     Dates: start: 20110726

REACTIONS (3)
  - SLUGGISHNESS [None]
  - SELF INJURIOUS BEHAVIOUR [None]
  - INTENTIONAL OVERDOSE [None]
